FAERS Safety Report 5996049-8 (Version None)
Quarter: 2008Q4

REPORT INFORMATION
  Report Type: 
  Country: None (occurrence: None)
  Receive Date: 20081212
  Receipt Date: 20081007
  Transmission Date: 20090506
  Serious: No
  Sender: FDA-Public Use
  Company Number: US-ABBOTT-08P-163-0480579-00

PATIENT
  Sex: Female
  Weight: 61.29 kg

DRUGS (4)
  1. HUMIRA [Suspect]
     Indication: CROHN'S DISEASE
     Route: 058
     Dates: start: 20081001
  2. MERCAPTOPURINE [Concomitant]
     Indication: CROHN'S DISEASE
     Dosage: 2 TABLETS EVERY DAY
     Route: 048
     Dates: start: 20020101
  3. IRON REDUALVIT PLUS CAPSULE [Concomitant]
     Indication: MINERAL SUPPLEMENTATION
     Dosage: EVERY DAY
     Route: 048
     Dates: start: 20080101
  4. VALACYCLOVIR [Concomitant]
     Indication: ORAL HERPES
     Route: 048
     Dates: start: 20060101

REACTIONS (1)
  - ACCIDENTAL EXPOSURE [None]
